FAERS Safety Report 15097860 (Version 1)
Quarter: 2018Q3

REPORT INFORMATION
  Report Type: Spontaneous
  Country: US (occurrence: US)
  Receive Date: 20180702
  Receipt Date: 20180702
  Transmission Date: 20181010
  Serious: No
  Sender: FDA-Public Use
  Company Number: US-PFM-2018-01552

PATIENT
  Sex: Male

DRUGS (4)
  1. HEMANGEOL [Suspect]
     Active Substance: PROPRANOLOL HYDROCHLORIDE
     Dosage: 3.0 ML, BID (2/DAY)
     Route: 048
     Dates: start: 20171128
  2. HEMANGEOL [Suspect]
     Active Substance: PROPRANOLOL HYDROCHLORIDE
     Dosage: 2.2 ML, BID (2/DAY)
     Route: 048
     Dates: start: 20170906, end: 20171004
  3. HEMANGEOL [Suspect]
     Active Substance: PROPRANOLOL HYDROCHLORIDE
     Dosage: 2.6 ML, BID (2/DAY)
     Route: 048
     Dates: start: 20171005, end: 20171127
  4. HEMANGEOL [Suspect]
     Active Substance: PROPRANOLOL HYDROCHLORIDE
     Indication: HAEMANGIOMA OF SKIN
     Dosage: 2 ML, BID (2/DAY)
     Route: 048
     Dates: start: 20170728, end: 20170905

REACTIONS (4)
  - Weight increased [Unknown]
  - Off label use [Unknown]
  - Extra dose administered [Unknown]
  - Product use issue [Unknown]
